FAERS Safety Report 14951205 (Version 1)
Quarter: 2018Q2

REPORT INFORMATION
  Report Type: Spontaneous
  Country: FR (occurrence: FR)
  Receive Date: 20180530
  Receipt Date: 20180530
  Transmission Date: 20180711
  Serious: Yes (Other)
  Sender: FDA-Public Use
  Company Number: FR-MERCK KGAA-2048663

PATIENT
  Age: 39 Year
  Sex: Female

DRUGS (2)
  1. NOVOTHYROX [Suspect]
     Active Substance: LEVOTHYROXINE SODIUM
  2. NOVOTHYROX [Suspect]
     Active Substance: LEVOTHYROXINE SODIUM
     Indication: POST PROCEDURAL HYPOTHYROIDISM
     Dates: start: 201705

REACTIONS (26)
  - Eosinophil count increased [Not Recovered/Not Resolved]
  - Loss of personal independence in daily activities [None]
  - Lymphocyte count increased [Not Recovered/Not Resolved]
  - Monocyte count decreased [Not Recovered/Not Resolved]
  - Muscle spasms [None]
  - Dizziness [None]
  - Visual impairment [None]
  - Feeling abnormal [None]
  - Amnesia [None]
  - Decreased activity [None]
  - Palpitations [None]
  - Headache [None]
  - Eye disorder [None]
  - Blood thyroid stimulating hormone decreased [None]
  - Basophil count [Not Recovered/Not Resolved]
  - Glomerular filtration rate decreased [Recovered/Resolved]
  - Fatigue [None]
  - Abdominal pain [None]
  - Impaired work ability [None]
  - Irritability [None]
  - Gastrointestinal motility disorder [None]
  - Blood glucose increased [None]
  - Myalgia [None]
  - Libido decreased [None]
  - Social avoidant behaviour [None]
  - Mood swings [None]

NARRATIVE: CASE EVENT DATE: 20170504
